FAERS Safety Report 15322337 (Version 3)
Quarter: 2018Q4

REPORT INFORMATION
  Report Type: Spontaneous
  Country: DE (occurrence: DE)
  Receive Date: 20180827
  Receipt Date: 20181031
  Transmission Date: 20190204
  Serious: Yes (Death, Hospitalization, Other)
  Sender: FDA-Public Use
  Company Number: PHHY2018DE081587

PATIENT
  Age: 54 Year
  Sex: Female

DRUGS (1)
  1. METFORMIN [Suspect]
     Active Substance: METFORMIN HYDROCHLORIDE
     Indication: DIABETES MELLITUS
     Dosage: UNK (UNBEKANNT)
     Route: 048

REACTIONS (2)
  - Sedation [Unknown]
  - Lactic acidosis [Fatal]

NARRATIVE: CASE EVENT DATE: 20180528
